FAERS Safety Report 13086472 (Version 8)
Quarter: 2017Q3

REPORT INFORMATION
  Report Type: Spontaneous
  Country: US (occurrence: US)
  Receive Date: 20170104
  Receipt Date: 20170823
  Transmission Date: 20171127
  Serious: Yes (Hospitalization)
  Sender: FDA-Public Use
  Company Number: US-ACTELION-A-NJ2016-147743

PATIENT
  Age: 26 Year
  Sex: Female
  Weight: 90.7 kg

DRUGS (3)
  1. OPSUMIT [Suspect]
     Active Substance: MACITENTAN
     Indication: PULMONARY ARTERIAL HYPERTENSION
     Dosage: 10 MG, QD
     Route: 048
     Dates: start: 20160620
  2. ADCIRCA [Concomitant]
     Active Substance: TADALAFIL
  3. REMODULIN [Concomitant]
     Active Substance: TREPROSTINIL

REACTIONS (12)
  - Influenza [Unknown]
  - Application site erosion [Unknown]
  - Application site irritation [Unknown]
  - Catheter management [Unknown]
  - Device related infection [Unknown]
  - Vomiting [Unknown]
  - Pneumonia [Unknown]
  - Upper respiratory tract infection [Unknown]
  - Tremor [Unknown]
  - Bronchitis [Unknown]
  - Sepsis [Unknown]
  - Flushing [Unknown]
